FAERS Safety Report 5540633-2 (Version None)
Quarter: 2007Q4

REPORT INFORMATION
  Report Type: 
  Country: None (occurrence: None)
  Receive Date: 20071129
  Receipt Date: 20070726
  Transmission Date: 20080405
  Serious: Yes (Disabling)
  Sender: FDA-Public Use
  Company Number: US200707006347

PATIENT
  Age: 90 Year
  Sex: Female

DRUGS (7)
  1. ZYPREXA [Suspect]
     Indication: AGITATION
     Dosage: 25 MG, DAILY (1/D),; 10 MG, DAILY (1/D),
     Dates: start: 20020601
  2. PAXIL [Concomitant]
  3. LEXAPRO [Concomitant]
  4. WARFARIN SODIUM [Concomitant]
  5. DIGOXIN [Concomitant]
  6. POTASSIUM CHLORIDE [Concomitant]
  7. TOPROL-XL [Concomitant]

REACTIONS (5)
  - GAIT DISTURBANCE [None]
  - HALLUCINATION, VISUAL [None]
  - MUSCLE ATROPHY [None]
  - OVERDOSE [None]
  - SOMNOLENCE [None]
